APPROVED DRUG PRODUCT: KETOROLAC TROMETHAMINE
Active Ingredient: KETOROLAC TROMETHAMINE
Strength: 10MG
Dosage Form/Route: TABLET;ORAL
Application: A074790 | Product #001
Applicant: CHARTWELL RX SCIENCES LLC
Approved: Jun 26, 1997 | RLD: No | RS: No | Type: DISCN